FAERS Safety Report 10287133 (Version 1)
Quarter: 2014Q3

REPORT INFORMATION
  Report Type: Spontaneous
  Country: IT (occurrence: IT)
  Receive Date: 20140709
  Receipt Date: 20140709
  Transmission Date: 20150326
  Serious: Yes (Hospitalization)
  Sender: FDA-Public Use
  Company Number: IT-TEVA-492915ISR

PATIENT
  Age: 63 Year
  Sex: Female

DRUGS (7)
  1. CITARABINA [Suspect]
     Active Substance: CYTARABINE
     Indication: DIFFUSE LARGE B-CELL LYMPHOMA RECURRENT
     Dosage: 12800 MILLIGRAM DAILY;
     Route: 042
     Dates: start: 20140303, end: 20140405
  2. SOLDESAM  8MG/2ML [Concomitant]
     Indication: DIFFUSE LARGE B-CELL LYMPHOMA RECURRENT
     Dosage: 168 GTT DAILY;
     Route: 048
     Dates: start: 20140304, end: 20140412
  3. DEPOCYTE [Suspect]
     Active Substance: CYTARABINE
     Indication: DIFFUSE LARGE B-CELL LYMPHOMA RECURRENT
     Dosage: 50 MILLIGRAM DAILY;
     Route: 037
     Dates: start: 20140306, end: 20140407
  4. SOLDESAM  8MG/2ML [Concomitant]
     Dates: start: 20140218, end: 20140303
  5. METHOTREXATE (METHOTREXATE SODIUM) [Suspect]
     Active Substance: METHOTREXATE SODIUM
     Indication: DIFFUSE LARGE B-CELL LYMPHOMA RECURRENT
     Dosage: 5600 MILLIGRAM DAILY;
     Route: 042
     Dates: start: 20140302, end: 20140403
  6. TIOTEPA [Suspect]
     Active Substance: THIOTEPA
     Indication: DIFFUSE LARGE B-CELL LYMPHOMA RECURRENT
     Dosage: 48 MILLIGRAM DAILY;
     Route: 042
     Dates: start: 20140305, end: 20140406
  7. MABTHERA [Suspect]
     Active Substance: RITUXIMAB
     Indication: DIFFUSE LARGE B-CELL LYMPHOMA RECURRENT
     Dosage: 600 MILLIGRAM DAILY;
     Route: 042
     Dates: start: 20140301, end: 20140402

REACTIONS (6)
  - Febrile neutropenia [Recovered/Resolved]
  - Psychotic disorder [None]
  - Inflammation [Recovered/Resolved]
  - Neutropenia [Recovered/Resolved]
  - Thrombocytopenia [Recovered/Resolved]
  - Dysphoria [None]

NARRATIVE: CASE EVENT DATE: 20140412
